FAERS Safety Report 13690668 (Version 1)
Quarter: 2017Q2

REPORT INFORMATION
  Report Type: Spontaneous
  Country: CA (occurrence: CA)
  Receive Date: 20170626
  Receipt Date: 20170626
  Transmission Date: 20170830
  Serious: Yes (Death, Hospitalization, Other)
  Sender: FDA-Public Use
  Company Number: CA-GLAXOSMITHKLINE-CA2017GSK098058

PATIENT
  Age: 76 Year
  Sex: Male
  Weight: 59 kg

DRUGS (12)
  1. ADVAIR HFA [Concomitant]
     Active Substance: FLUTICASONE PROPIONATE\SALMETEROL XINAFOATE
     Indication: PRODUCT USED FOR UNKNOWN INDICATION
     Dosage: UNK
  2. VALPROATE SEMISODIUM [Concomitant]
     Active Substance: DIVALPROEX SODIUM
     Indication: PRODUCT USED FOR UNKNOWN INDICATION
     Dosage: UNK
  3. SALBUTAMOL [Suspect]
     Active Substance: ALBUTEROL
     Indication: ASTHMA
  4. SALBUTAMOL [Suspect]
     Active Substance: ALBUTEROL
     Indication: WHEEZING
     Dosage: 2 DF, 1D
  5. MORPHINE [Suspect]
     Active Substance: MORPHINE
     Indication: PAIN
     Dosage: UNK
  6. XOLAIR [Suspect]
     Active Substance: OMALIZUMAB
     Indication: ASTHMA
     Dosage: UNK
     Route: 058
  7. DILAUDID [Concomitant]
     Active Substance: HYDROMORPHONE HYDROCHLORIDE
     Indication: PRODUCT USED FOR UNKNOWN INDICATION
     Dosage: UNK
     Route: 058
  8. XOLAIR [Suspect]
     Active Substance: OMALIZUMAB
     Dosage: 225 UG, UNK
  9. AMMONIUM CHLORIDE. [Concomitant]
     Active Substance: AMMONIUM CHLORIDE
     Indication: PRODUCT USED FOR UNKNOWN INDICATION
     Dosage: UNK
  10. CAFFEINE. [Concomitant]
     Active Substance: CAFFEINE
     Indication: PRODUCT USED FOR UNKNOWN INDICATION
     Dosage: UNK
  11. XOLAIR [Suspect]
     Active Substance: OMALIZUMAB
     Dosage: 375 UG, UNK
     Route: 058
  12. XOLAIR [Suspect]
     Active Substance: OMALIZUMAB
     Dosage: 325 UG, UNK

REACTIONS (49)
  - Metastases to bone [Unknown]
  - Diarrhoea [Unknown]
  - Dyspnoea [Unknown]
  - Memory impairment [Unknown]
  - Urinary tract infection [Unknown]
  - Death [Fatal]
  - Hypoventilation [Unknown]
  - Respiratory tract infection [Unknown]
  - Sepsis [Unknown]
  - Abdominal discomfort [Unknown]
  - Body temperature decreased [Unknown]
  - Hypertension [Unknown]
  - Insomnia [Unknown]
  - Respiratory tract congestion [Unknown]
  - Umbilical hernia [Unknown]
  - Abdominal pain upper [Unknown]
  - Anxiety [Unknown]
  - Cough [Unknown]
  - Fatigue [Unknown]
  - Heart rate irregular [Unknown]
  - Hypopnoea [Unknown]
  - Polyp [Unknown]
  - Sputum discoloured [Unknown]
  - Urinary tract disorder [Unknown]
  - Chest discomfort [Unknown]
  - Pain [Unknown]
  - Productive cough [Unknown]
  - Respiratory rate increased [Unknown]
  - Wheezing [Unknown]
  - Asthenia [Unknown]
  - Back pain [Unknown]
  - Blood pressure diastolic decreased [Unknown]
  - Prostate cancer metastatic [Unknown]
  - Disturbance in attention [Unknown]
  - Malaise [Unknown]
  - Nasal congestion [Unknown]
  - Respiratory disorder [Unknown]
  - Stress [Unknown]
  - Asthma [Unknown]
  - Breath sounds abnormal [Unknown]
  - Dizziness [Unknown]
  - Haematoma [Unknown]
  - Heart rate increased [Unknown]
  - Sinusitis [Unknown]
  - Blood pressure increased [Unknown]
  - Feeling abnormal [Unknown]
  - Muscle spasms [Unknown]
  - Nasopharyngitis [Unknown]
  - Rhonchi [Unknown]
